FAERS Safety Report 6198624-7 (Version None)
Quarter: 2009Q2

REPORT INFORMATION
  Report Type: 
  Country: None (occurrence: None)
  Receive Date: 20090519
  Receipt Date: 20090519
  Transmission Date: 20091009
  Serious: Yes (Other)
  Sender: FDA-Public Use
  Company Number: None

PATIENT
  Sex: Female
  Weight: 97.4326 kg

DRUGS (1)
  1. FLUOXETINE [Suspect]
     Dosage: 20 MG 1 PO QD PO AT LEAST 2 YEARS AGO PT HAS BEEN ON BRAND NAME SINCE
     Route: 048

REACTIONS (1)
  - DRUG INEFFECTIVE [None]
